FAERS Safety Report 8150592-4 (Version None)
Quarter: 2012Q1

REPORT INFORMATION
  Report Type: 
  Country: None (occurrence: None)
  Receive Date: 20120220
  Receipt Date: 20120104
  Transmission Date: 20120608
  Serious: Yes (Death)
  Sender: FDA-Public Use
  Company Number: US-COVIDIEN/TYCO HEALTHCARE/MALLINCKRODT-T201200397

PATIENT
  Age: 81 Year
  Sex: Male

DRUGS (6)
  1. DIAZEPAM [Suspect]
     Route: 048
  2. HYDROCODONE BITARTRATE AND ACETAMINOPHEN [Suspect]
     Route: 048
  3. VERAPAMIL EXTENDED-RELEASE [Suspect]
     Route: 048
  4. QUININE SULFATE [Suspect]
     Route: 048
  5. HYDRALAZINE HCL [Suspect]
     Route: 048
  6. TERAZOSIN HCL [Suspect]
     Route: 048

REACTIONS (1)
  - COMPLETED SUICIDE [None]
